FAERS Safety Report 9670967 (Version 1)
Quarter: 2013Q4

REPORT INFORMATION
  Report Type: Spontaneous
  Country: BR (occurrence: BR)
  Receive Date: 20131106
  Receipt Date: 20131106
  Transmission Date: 20140711
  Serious: Yes (Other)
  Sender: FDA-Public Use
  Company Number: BR-JNJFOC-20131019312

PATIENT
  Age: 33 Year
  Sex: Female
  Weight: 65 kg

DRUGS (4)
  1. EVRA [Suspect]
     Indication: CONTRACEPTION
     Route: 062
  2. EVRA [Suspect]
     Indication: CONTRACEPTION
     Route: 062
     Dates: start: 201310
  3. SPIRONOLACTONE [Interacting]
     Indication: HORMONE LEVEL ABNORMAL
     Route: 065
     Dates: start: 2012, end: 2012
  4. MESALAZINE [Concomitant]
     Indication: COLITIS
     Route: 065

REACTIONS (6)
  - Pregnancy with contraceptive patch [Recovered/Resolved]
  - Exposure during pregnancy [Recovered/Resolved]
  - Colitis [Not Recovered/Not Resolved]
  - Drug interaction [Recovered/Resolved]
  - Acne [Not Recovered/Not Resolved]
  - Drug administration error [Unknown]
